FAERS Safety Report 5297910-2 (Version None)
Quarter: 2007Q2

REPORT INFORMATION
  Report Type: 
  Country: None (occurrence: None)
  Receive Date: 20070416
  Receipt Date: 20070412
  Transmission Date: 20071010
  Serious: Yes (Other)
  Sender: FDA-Public Use
  Company Number: US-GLAXOSMITHKLINE-A0644641A

PATIENT
  Age: 10 Year
  Sex: Male

DRUGS (2)
  1. AUGMENTIN '125' [Suspect]
     Indication: SINUSITIS
     Dosage: 2TSP TWICE PER DAY
     Route: 048
     Dates: start: 20070316, end: 20070318
  2. NO CONCURRENT MEDICATION [Concomitant]

REACTIONS (4)
  - ASTHMA [None]
  - EYELID DISORDER [None]
  - PNEUMONIA [None]
  - SWELLING FACE [None]
